FAERS Safety Report 5847076-2 (Version None)
Quarter: 2008Q3

REPORT INFORMATION
  Report Type: 
  Country: None (occurrence: None)
  Receive Date: 20080815
  Receipt Date: 20080808
  Transmission Date: 20090109
  Serious: Yes (Other)
  Sender: FDA-Public Use
  Company Number: IE-PFIZER INC-2008067052

PATIENT

DRUGS (3)
  1. LIPITOR [Suspect]
     Route: 048
  2. FLOXACILLIN SODIUM [Suspect]
  3. FUSIDIC ACID [Suspect]

REACTIONS (1)
  - BLOOD DISORDER [None]
